FAERS Safety Report 7671365-2 (Version None)
Quarter: 2011Q3

REPORT INFORMATION
  Report Type: 
  Country: None (occurrence: None)
  Receive Date: 20110809
  Receipt Date: 20110729
  Transmission Date: 20111222
  Serious: Yes (Hospitalization)
  Sender: FDA-Public Use
  Company Number: GB-TEVA-294743ISR

PATIENT
  Age: 58 Year
  Sex: Female

DRUGS (1)
  1. CITALOPRAM HYDROBROMIDE [Suspect]
     Indication: DEPRESSION
     Dosage: 60 MILLIGRAM;
     Route: 048

REACTIONS (2)
  - DUODENAL PERFORATION [None]
  - DUODENAL STENOSIS [None]
